FAERS Safety Report 24864254 (Version 1)
Quarter: 2025Q1

REPORT INFORMATION
  Report Type: Spontaneous
  Country: US (occurrence: US)
  Receive Date: 20250120
  Receipt Date: 20250120
  Transmission Date: 20250408
  Serious: No
  Sender: OCULAR
  Company Number: US-OCULAR THERAPEUTIX-2024OCX00003

PATIENT

DRUGS (1)
  1. DEXTENZA [Suspect]
     Active Substance: DEXAMETHASONE
     Route: 047

REACTIONS (1)
  - Eye inflammation [Unknown]
